FAERS Safety Report 5629408-3 (Version None)
Quarter: 2008Q1

REPORT INFORMATION
  Report Type: 
  Country: None (occurrence: None)
  Receive Date: 20080215
  Receipt Date: 20080215
  Transmission Date: 20080703
  Serious: Yes (Hospitalization)
  Sender: FDA-Public Use
  Company Number: None

PATIENT
  Sex: Female
  Weight: 77.5651 kg

DRUGS (2)
  1. PEGASYS [Suspect]
     Indication: HEPATITIS C
     Dosage: 180 MCG X 1/WEEK  SUBQ
     Route: 058
     Dates: start: 20070904
  2. COPEGUS [Suspect]
     Dosage: 200MG X2 BID P.O.
     Route: 048
     Dates: start: 20070904

REACTIONS (2)
  - INTENTIONAL SELF-INJURY [None]
  - SUICIDE ATTEMPT [None]
